FAERS Safety Report 24050947 (Version 1)
Quarter: 2024Q3

REPORT INFORMATION
  Report Type: Spontaneous
  Country: US (occurrence: US)
  Receive Date: 20240704
  Receipt Date: 20240704
  Transmission Date: 20241017
  Serious: No
  Sender: BRISTOL MYERS SQUIBB
  Company Number: US-BRISTOL-MYERS SQUIBB COMPANY-2024-107022

PATIENT
  Age: 66 Year
  Sex: Male
  Weight: 72.12 kg

DRUGS (1)
  1. POMALYST [Suspect]
     Active Substance: POMALIDOMIDE
     Indication: Plasma cell myeloma
     Dosage: ONE DAILY AT BEDTIME FOR 21 ON FOLLOWED BY 7 DAYS OFF
     Route: 048
     Dates: start: 202406, end: 202406

REACTIONS (4)
  - Pain [Unknown]
  - Skin discolouration [Unknown]
  - Pruritus [Unknown]
  - Joint swelling [Unknown]
